FAERS Safety Report 6153620-0 (Version None)
Quarter: 2009Q2

REPORT INFORMATION
  Report Type: 
  Country: None (occurrence: None)
  Receive Date: 20090409
  Receipt Date: 20090330
  Transmission Date: 20091009
  Serious: Yes (Other)
  Sender: FDA-Public Use
  Company Number: JPI-P-006846

PATIENT
  Age: 69 Year

DRUGS (3)
  1. LUVOX [Suspect]
     Indication: INSOMNIA
     Dosage: (75 MG, 1 D) ORAL
     Route: 048
  2. FLUNITRAZEPAM [Concomitant]
  3. DOMPERIDONE [Concomitant]

REACTIONS (3)
  - BLOOD CREATINE PHOSPHOKINASE INCREASED [None]
  - BODY TEMPERATURE INCREASED [None]
  - MALAISE [None]
